FAERS Safety Report 8950321 (Version 1)
Quarter: 2012Q4

REPORT INFORMATION
  Report Type: Spontaneous
  Country: US (occurrence: None)
  Receive Date: 20121130
  Receipt Date: 20121130
  Transmission Date: 20130627
  Serious: Yes (Disabling, Other)
  Sender: FDA-Public Use
  Company Number: None

PATIENT
  Age: 64 Year
  Sex: Female
  Weight: 58.06 kg

DRUGS (1)
  1. LEVEMIR [Suspect]
     Indication: TYPE 1 DIABETES MELLITUS
     Dosage: 12 units-am-, 7-8 units -pm- daily sq
     Route: 058
     Dates: start: 20121105, end: 20121128

REACTIONS (3)
  - Drug effect decreased [None]
  - Therapy cessation [None]
  - Product packaging quantity issue [None]
